FAERS Safety Report 8414113-0 (Version None)
Quarter: 2012Q2

REPORT INFORMATION
  Report Type: 
  Country: None (occurrence: None)
  Receive Date: 20120323
  Receipt Date: 20110325
  Transmission Date: 20120825
  Serious: Yes (Death)
  Sender: FDA-Public Use
  Company Number: 163-21880-11022133

PATIENT
  Age: 74 Year
  Sex: Male

DRUGS (8)
  1. REVLIMID [Suspect]
     Indication: MULTIPLE MYELOMA
     Dosage: 25 MG, 1 IN 1 D, PO, 10 MG, 1 IN 1 D, PO
     Route: 048
     Dates: start: 20091001
  2. REVLIMID [Suspect]
     Indication: MULTIPLE MYELOMA
     Dosage: 25 MG, 1 IN 1 D, PO, 10 MG, 1 IN 1 D, PO
     Route: 048
     Dates: start: 20091001
  3. AMBIEN [Concomitant]
  4. DEXAMETHASONE [Concomitant]
  5. MULTIVITAMIN FOR MEN (MULTIVITAMINS) [Concomitant]
  6. NEURONTIN [Concomitant]
  7. BISMUTH SUBSALICYLATE [Concomitant]
  8. ACETAMINOPHEN [Concomitant]

REACTIONS (2)
  - PNEUMONIA [None]
  - INFECTION [None]
